FAERS Safety Report 4992454-7 (Version None)
Quarter: 2006Q1

REPORT INFORMATION
  Report Type: 
  Country: None (occurrence: None)
  Receive Date: 20060314
  Receipt Date: 20051114
  Transmission Date: 20060701
  Serious: Yes (Hospitalization)
  Sender: FDA-Public Use
  Company Number: 2005-02358

PATIENT
  Age: 83 Year
  Sex: Male
  Weight: 74.8 kg

DRUGS (1)
  1. VELCADE [Suspect]
     Indication: PLASMACYTOMA
     Dosage: 2.40 MG, IV BOLUS
     Route: 040
     Dates: start: 20051104, end: 20051107

REACTIONS (4)
  - ASTHENIA [None]
  - HYPONATRAEMIA [None]
  - NAUSEA [None]
  - VOMITING [None]
